FAERS Safety Report 12090989 (Version 2)
Quarter: 2016Q1

REPORT INFORMATION
  Report Type: Spontaneous
  Country: US (occurrence: US)
  Receive Date: 20160218
  Receipt Date: 20160222
  Transmission Date: 20160526
  Serious: No
  Sender: FDA-Public Use
  Company Number: US-BAYER-2016-032023

PATIENT
  Age: 50 Year
  Sex: Female

DRUGS (1)
  1. CLARITIN-D 12 HOUR [Suspect]
     Active Substance: LORATADINE\PSEUDOEPHEDRINE SULFATE
     Indication: SEASONAL ALLERGY
     Dosage: 2 DF, ONCE MISTAKENLY TOOK 2 AT 1 TIME

REACTIONS (2)
  - Extra dose administered [Unknown]
  - Product use issue [None]

NARRATIVE: CASE EVENT DATE: 20160217
